FAERS Safety Report 24847968 (Version 1)
Quarter: 2025Q1

REPORT INFORMATION
  Report Type: Spontaneous
  Country: CN (occurrence: CN)
  Receive Date: 20250116
  Receipt Date: 20250116
  Transmission Date: 20250409
  Serious: Yes (Other)
  Sender: ORGANON
  Company Number: CN-BAYER-2025A004842

PATIENT

DRUGS (1)
  1. MOMETASONE FUROATE [Suspect]
     Active Substance: MOMETASONE FUROATE
     Route: 061

REACTIONS (5)
  - Hypersensitivity [Unknown]
  - Lip swelling [Unknown]
  - Dyspnoea [Unknown]
  - Tremor [Unknown]
  - Suspected product quality issue [Unknown]
